FAERS Safety Report 6746393-1 (Version None)
Quarter: 2010Q2

REPORT INFORMATION
  Report Type: 
  Country: None (occurrence: None)
  Receive Date: 20100528
  Receipt Date: 20090602
  Transmission Date: 20101027
  Serious: No
  Sender: FDA-Public Use
  Company Number: A0789597A

PATIENT
  Age: 60 Year
  Sex: Male

DRUGS (17)
  1. FLOLAN [Suspect]
     Route: 042
     Dates: start: 20090601, end: 20090602
  2. TYLENOL (CAPLET) [Concomitant]
  3. AMIODARONE [Concomitant]
  4. ASPIRIN [Concomitant]
  5. FENTANYL [Concomitant]
  6. CALCIUM GLUCONATE [Concomitant]
  7. LASIX [Concomitant]
  8. INSULIN [Concomitant]
  9. POTASSIUM [Concomitant]
  10. MAGNESIUM SULFATE [Concomitant]
  11. PROTONIX [Concomitant]
  12. VANCOMYCIN [Concomitant]
  13. EPINEPHRINE [Concomitant]
  14. MALARONE [Concomitant]
  15. VASOPRESSIN [Concomitant]
  16. PROPOFOL [Concomitant]
  17. PHENYLEPHRINE [Concomitant]

REACTIONS (1)
  - DRUG INEFFECTIVE [None]
